FAERS Safety Report 6096979-5 (Version None)
Quarter: 2009Q1

REPORT INFORMATION
  Report Type: 
  Country: None (occurrence: None)
  Receive Date: 20090227
  Receipt Date: 20090216
  Transmission Date: 20090719
  Serious: Yes (Other)
  Sender: FDA-Public Use
  Company Number: US-PFIZER INC-2009170780

PATIENT
  Age: 70 Year
  Sex: Female
  Weight: 66 kg

DRUGS (1)
  1. SUNITINIB MALATE [Suspect]
     Indication: MESOTHELIOMA MALIGNANT ADVANCED
     Dosage: 50 MG, 1X/DAY, QD X 4 WEEKS
     Route: 048
     Dates: start: 20070720

REACTIONS (1)
  - GINGIVAL INFECTION [None]
